FAERS Safety Report 12347655 (Version 1)
Quarter: 2016Q2

REPORT INFORMATION
  Report Type: Spontaneous
  Country: US (occurrence: US)
  Receive Date: 20160509
  Receipt Date: 20160509
  Transmission Date: 20160815
  Serious: Yes (Other)
  Sender: FDA-Public Use
  Company Number: US-PFIZER INC-2016237373

PATIENT
  Age: 31 Year
  Sex: Male

DRUGS (10)
  1. VALPROIC ACID. [Interacting]
     Active Substance: VALPROIC ACID
     Dosage: 3000 MG, DAILY
  2. CARBAMAZEPINE. [Concomitant]
     Active Substance: CARBAMAZEPINE
     Indication: SEIZURE
     Dosage: UNK
  3. PHENYTOIN. [Interacting]
     Active Substance: PHENYTOIN
     Dosage: 200 MG, DAILY
     Route: 048
  4. PHENYTOIN. [Interacting]
     Active Substance: PHENYTOIN
     Dosage: 1000 MG, DAILY
     Route: 048
  5. PHENYTOIN. [Suspect]
     Active Substance: PHENYTOIN
     Indication: SEIZURE
     Dosage: 400 MG, DAILY
     Route: 048
  6. VALPROIC ACID. [Interacting]
     Active Substance: VALPROIC ACID
     Dosage: 2250 MG, DAILY
  7. VALPROIC ACID. [Interacting]
     Active Substance: VALPROIC ACID
     Dosage: 2750 MG, DAILY
  8. VALPROIC ACID. [Interacting]
     Active Substance: VALPROIC ACID
     Indication: SEIZURE
     Dosage: 2250 MG, DAILY
  9. VALPROIC ACID. [Interacting]
     Active Substance: VALPROIC ACID
     Dosage: 2750 MG, DAILY
  10. CLONAZEPAM. [Concomitant]
     Active Substance: CLONAZEPAM
     Indication: SEIZURE
     Dosage: UNK

REACTIONS (4)
  - Condition aggravated [Unknown]
  - Delirium [Unknown]
  - Seizure [Unknown]
  - Drug interaction [Unknown]
